FAERS Safety Report 7482745-2 (Version None)
Quarter: 2011Q2

REPORT INFORMATION
  Report Type: 
  Country: None (occurrence: None)
  Receive Date: 20110516
  Receipt Date: 20110509
  Transmission Date: 20111010
  Serious: Yes (Death, Hospitalization)
  Sender: FDA-Public Use
  Company Number: BR-MEDIMMUNE-MEDI-0012978

PATIENT
  Sex: Female
  Weight: 7.3 kg

DRUGS (4)
  1. MEFENAMIC ACID [Concomitant]
     Route: 048
     Dates: start: 20090727
  2. FERROGLYCINATE CHELATE [Concomitant]
     Route: 048
     Dates: start: 20090727
  3. SYNAGIS [Suspect]
     Indication: CARDIAC DISORDER
     Route: 030
     Dates: start: 20100427
  4. SYNAGIS [Suspect]
     Indication: BRONCHOPULMONARY DYSPLASIA

REACTIONS (9)
  - TRISOMY 21 [None]
  - INFECTION [None]
  - SEPTIC SHOCK [None]
  - PULMONARY SEPSIS [None]
  - PYREXIA [None]
  - FEBRILE NEUTROPENIA [None]
  - MYELOID LEUKAEMIA [None]
  - PLATELET COUNT DECREASED [None]
  - HEART DISEASE CONGENITAL [None]
